FAERS Safety Report 14370029 (Version 3)
Quarter: 2018Q3

REPORT INFORMATION
  Report Type: Spontaneous
  Country: DE (occurrence: DE)
  Receive Date: 20180110
  Receipt Date: 20180928
  Transmission Date: 20181010
  Serious: Yes (Hospitalization)
  Sender: FDA-Public Use
  Company Number: DE-SUN PHARMACEUTICAL INDUSTRIES LTD-2018R1-159283

PATIENT
  Age: 78 Year
  Sex: Male

DRUGS (11)
  1. IBUPROFEN. [Suspect]
     Active Substance: IBUPROFEN
     Indication: PRODUCT USED FOR UNKNOWN INDICATION
     Dosage: UNK
     Route: 065
  2. BISOPROLOL [Concomitant]
     Active Substance: BISOPROLOL
     Indication: PRODUCT USED FOR UNKNOWN INDICATION
     Dosage: 5 MG, 1/2 ? 0? 1/2
     Route: 065
  3. EZETIMIBE/SIMVASTATIN [Concomitant]
     Active Substance: EZETIMIBE\SIMVASTATIN
     Indication: PRODUCT USED FOR UNKNOWN INDICATION
     Dosage: 10/20 MG 1X/DAY
     Route: 065
  4. DREISAFER [Concomitant]
     Indication: PRODUCT USED FOR UNKNOWN INDICATION
     Dosage: UNK
     Route: 065
  5. METAMIZOL [Concomitant]
     Active Substance: METAMIZOLE SODIUM
     Indication: ANALGESIC THERAPY
     Dosage: 500 MG, PRN
     Route: 065
  6. VOLTAREN RESINAT [Interacting]
     Active Substance: DICLOFENAC
     Indication: PRODUCT USED FOR UNKNOWN INDICATION
     Dosage: UNK
     Route: 065
  7. XARELTO [Interacting]
     Active Substance: RIVAROXABAN
     Indication: PRODUCT USED FOR UNKNOWN INDICATION
     Dosage: 20 MG
     Route: 065
     Dates: end: 201709
  8. RIVAROXABAN [Concomitant]
     Active Substance: RIVAROXABAN
     Indication: ATRIAL FIBRILLATION
     Dosage: 20 MG, DAILY
     Route: 048
  9. UNACID PD [Interacting]
     Active Substance: SULTAMICILLIN TOSYLATE
     Indication: INFECTED BITE
     Dosage: 1500 MG MILLIGRAM(S) EVERY DAY
     Route: 048
     Dates: start: 20170824
  10. UNACID PD [Interacting]
     Active Substance: SULTAMICILLIN TOSYLATE
     Dosage: DAILY DOSE: 4 DF DOSAGE FORM EVERY DAY
     Route: 065
  11. VALSARTAN AND HYDROCHLOROTHIAZIDE [Concomitant]
     Active Substance: HYDROCHLOROTHIAZIDE\VALSARTAN
     Indication: PRODUCT USED FOR UNKNOWN INDICATION
     Dosage: 80/12.5 MG, 1X/DAY
     Route: 065

REACTIONS (15)
  - Haemorrhage [Recovered/Resolved]
  - Gastrointestinal vascular malformation haemorrhagic [Unknown]
  - Haemorrhage [Unknown]
  - Gastrointestinal angiectasia [Recovered/Resolved]
  - Diarrhoea [Unknown]
  - Haemoglobin decreased [Unknown]
  - Dizziness [Unknown]
  - Faeces discoloured [Unknown]
  - Haematochezia [Unknown]
  - Iron deficiency [Unknown]
  - Haemorrhagic anaemia [Unknown]
  - Fatigue [Unknown]
  - Drug interaction [Unknown]
  - Lower gastrointestinal haemorrhage [Recovered/Resolved]
  - Gastrointestinal angiectasia [Recovered/Resolved]

NARRATIVE: CASE EVENT DATE: 2017
